FAERS Safety Report 8628457 (Version 2)
Quarter: 2012Q4

REPORT INFORMATION
  Report Type: 
  Country: US (occurrence: US)
  Receive Date: 20120621
  Receipt Date: 20121124
  Transmission Date: 20130627
  Serious: Yes (Hospitalization)
  Sender: FDA-Public Use
  Company Number: US-BAYER-2012-058906

PATIENT
  Age: 32 Year
  Sex: Female
  Weight: 45.35 kg

DRUGS (10)
  1. YASMIN [Suspect]
     Indication: CONTRACEPTION
     Dosage: UNK
     Dates: start: 20030811, end: 200501
  2. YASMIN [Suspect]
     Indication: ENDOMETRIOSIS
     Dosage: UNK
     Dates: start: 20060812, end: 200804
  3. YASMIN [Suspect]
     Indication: CONTRACEPTION
     Dosage: UNK
     Dates: start: 200804, end: 200910
  4. OCELLA [Suspect]
     Indication: CONTRACEPTION
     Dosage: UNK
     Dates: start: 200808, end: 200904
  5. OCELLA [Suspect]
     Indication: ENDOMETRIOSIS
  6. FIORICET [Concomitant]
     Indication: MIGRAINE
     Dosage: UNK
     Dates: start: 2002
  7. IMITREX [Concomitant]
     Indication: MIGRAINE
     Dosage: 20 mg, UNK
     Dates: start: 2002
  8. VALTREX [Concomitant]
     Dosage: 500 mg, UNK
  9. AMOXICILLIN [Concomitant]
     Dosage: 500 mg, UNK
  10. BELLADONNA AND PHENOBARBITONE [Concomitant]

REACTIONS (5)
  - Gallbladder injury [None]
  - Biliary dyskinesia [None]
  - Pain [None]
  - Injury [None]
  - Pain [None]
